FAERS Safety Report 9559128 (Version 2)
Quarter: 2013Q4

REPORT INFORMATION
  Report Type: Report from Study
  Country: CA (occurrence: CA)
  Receive Date: 20130927
  Receipt Date: 20131003
  Transmission Date: 20140711
  Serious: Yes (Other)
  Sender: FDA-Public Use
  Company Number: CA-ALEXION PHARMACEUTICALS INC.-A201302318

PATIENT
  Age: 56 Year
  Sex: Female
  Weight: 83.91 kg

DRUGS (16)
  1. SOLIRIS [Suspect]
     Indication: PAROXYSMAL NOCTURNAL HAEMOGLOBINURIA
     Dosage: 600 MG, QW
     Route: 042
     Dates: start: 20120604, end: 20120625
  2. SOLIRIS [Suspect]
     Dosage: 900 MG, Q2W
     Route: 042
     Dates: start: 20120703
  3. ELTROXIN [Concomitant]
     Dosage: 50 ?G, QD
     Route: 048
     Dates: start: 1992
  4. RAMIPRIL [Concomitant]
     Dosage: 10 MG, QD
     Route: 048
     Dates: start: 2002, end: 201308
  5. EZETROL [Concomitant]
     Dosage: 10 MG, QD
     Route: 048
     Dates: start: 2009
  6. ATENOLOL [Concomitant]
     Dosage: 50 MG, QD
     Route: 048
     Dates: start: 2002
  7. METFORMIN [Concomitant]
     Dosage: 500 MG, BID
     Route: 048
     Dates: start: 2002
  8. DIAMICRON MR [Concomitant]
     Dosage: 30 MG, QD
     Route: 048
     Dates: start: 2011
  9. SYMBICORT [Concomitant]
     Dosage: 2 PUFFS, BID PRN
     Dates: start: 2010
  10. MULTIVITAMIN [Concomitant]
     Dosage: 1 DF, QD
     Route: 048
  11. VITAMIN C [Concomitant]
     Dosage: 1 DF, QD
     Route: 048
  12. VITAMIN E [Concomitant]
     Dosage: 1 DF, QD
     Route: 048
  13. VITAMIN B12 [Concomitant]
     Dosage: 1 DF, QD
     Route: 048
  14. DDAVP [Concomitant]
     Dosage: UNK, PRIOR TO SURGERY
     Route: 042
  15. PREDNISONE [Concomitant]
     Indication: APLASTIC ANAEMIA
     Dosage: UNK
     Dates: start: 201308
  16. CYCLOSPORIN [Concomitant]
     Indication: APLASTIC ANAEMIA
     Dosage: UNK
     Dates: start: 201308

REACTIONS (2)
  - Platelet count decreased [Not Recovered/Not Resolved]
  - Haemoglobin decreased [Recovered/Resolved]
